FAERS Safety Report 12071756 (Version 1)
Quarter: 2016Q1

REPORT INFORMATION
  Report Type: Report from Study
  Country: US (occurrence: US)
  Receive Date: 20160212
  Receipt Date: 20160212
  Transmission Date: 20160526
  Serious: No
  Sender: FDA-Public Use
  Company Number: PHEH2016US003053

PATIENT
  Sex: Female

DRUGS (1)
  1. ILARIS [Suspect]
     Active Substance: CANAKINUMAB
     Indication: PRODUCT USED FOR UNKNOWN INDICATION
     Dosage: 25.5 MG, EVERY 8 WEEKS
     Route: 058

REACTIONS (3)
  - Rash [Unknown]
  - Concomitant disease aggravated [Unknown]
  - Viral skin infection [Unknown]
